FAERS Safety Report 24468032 (Version 1)
Quarter: 2024Q4

REPORT INFORMATION
  Report Type: Spontaneous
  Country: BR (occurrence: BR)
  Receive Date: 20241018
  Receipt Date: 20241018
  Transmission Date: 20250115
  Serious: Yes (Other)
  Sender: ABBVIE
  Company Number: BR-ABBVIE-5963739

PATIENT
  Sex: Male
  Weight: 75 kg

DRUGS (4)
  1. RINVOQ [Suspect]
     Active Substance: UPADACITINIB
     Indication: Dermatitis atopic
     Dosage: FORM STRENGTH: 15 MILLIGRAM
     Route: 048
     Dates: start: 202306, end: 202308
  2. DOMPERIDONE [Suspect]
     Active Substance: DOMPERIDONE
     Indication: Gastritis
     Route: 065
  3. VONOPRAZAN FUMARATE [Suspect]
     Active Substance: VONOPRAZAN FUMARATE
     Indication: Gastritis
     Route: 065
  4. PANTOPRAZOLE [Suspect]
     Active Substance: PANTOPRAZOLE
     Indication: Gastritis
     Route: 065

REACTIONS (10)
  - Oesophagitis [Unknown]
  - Helicobacter infection [Unknown]
  - Oral discomfort [Unknown]
  - Dermatitis atopic [Unknown]
  - Immunodeficiency [Unknown]
  - Gastritis [Unknown]
  - Cough [Unknown]
  - Unevaluable event [Unknown]
  - Gastritis [Unknown]
  - Drug ineffective [Unknown]
